FAERS Safety Report 16406454 (Version 1)
Quarter: 2019Q2

REPORT INFORMATION
  Report Type: Spontaneous
  Country: US (occurrence: US)
  Receive Date: 20190607
  Receipt Date: 20190607
  Transmission Date: 20190711
  Serious: Yes (Death, Other)
  Sender: FDA-Public Use
  Company Number: US-BRISTOL-MYERS SQUIBB COMPANY-BMS-2019-054163

PATIENT
  Sex: Male
  Weight: 128 kg

DRUGS (4)
  1. ELIQUIS [Suspect]
     Active Substance: APIXABAN
     Indication: EMBOLISM VENOUS
     Dosage: 5 MILLIGRAM, BID
     Route: 048
  2. VITAMINS NOS [Concomitant]
     Active Substance: VITAMINS
     Indication: PRODUCT USED FOR UNKNOWN INDICATION
     Route: 065
  3. GLYBURIDE. [Concomitant]
     Active Substance: GLYBURIDE
     Indication: PRODUCT USED FOR UNKNOWN INDICATION
     Route: 065
  4. DILAUDID [Suspect]
     Active Substance: HYDROMORPHONE HYDROCHLORIDE
     Indication: PAIN
     Dosage: UNK
     Route: 065

REACTIONS (11)
  - Swelling [Unknown]
  - Respiratory arrest [Fatal]
  - Abdominal distension [Unknown]
  - Weight increased [Unknown]
  - Haemorrhage urinary tract [Unknown]
  - Pulmonary thrombosis [Unknown]
  - Disorientation [Unknown]
  - Cardiac arrest [Fatal]
  - Dyspnoea [Unknown]
  - Chills [Unknown]
  - Off label use [Unknown]
